FAERS Safety Report 19258759 (Version 1)
Quarter: 2021Q2

REPORT INFORMATION
  Report Type: Spontaneous
  Country: US (occurrence: US)
  Receive Date: 20210514
  Receipt Date: 20210514
  Transmission Date: 20210717
  Serious: Yes (Hospitalization, Other)
  Sender: FDA-Public Use
  Company Number: None

PATIENT
  Sex: Female

DRUGS (5)
  1. XOLAIR [Suspect]
     Active Substance: OMALIZUMAB
     Indication: ANAPHYLACTIC SHOCK
     Dosage: ?          OTHER FREQUENCY:EVERY 28 DAYS;?
     Route: 058
     Dates: start: 20210511
  2. COVID?19 VACCINE NOS. [Suspect]
     Active Substance: COVID-19 VACCINE NOS
  3. PREGABALIN CAP 50MG [Concomitant]
     Dates: start: 20210423
  4. GABAPENTIN. [Suspect]
     Active Substance: GABAPENTIN
  5. ALBUTEROL AER HFA [Concomitant]
     Dates: start: 20210423

REACTIONS (12)
  - Anaphylactic reaction [None]
  - Lip swelling [None]
  - Myalgia [None]
  - Asthenia [None]
  - Drooling [None]
  - Autoimmune disorder [None]
  - Pharyngeal swelling [None]
  - Paraesthesia [None]
  - Hyperaesthesia [None]
  - Fatigue [None]
  - Swollen tongue [None]
  - Dysuria [None]
